FAERS Safety Report 25499338 (Version 1)
Quarter: 2025Q3

REPORT INFORMATION
  Report Type: Spontaneous
  Country: EU (occurrence: EU)
  Receive Date: 20250701
  Receipt Date: 20250701
  Transmission Date: 20251020
  Serious: Yes (Other)
  Sender: PFIZER
  Company Number: None

PATIENT
  Age: 43 Year
  Sex: Male
  Weight: 68 kg

DRUGS (4)
  1. BRAFTOVI [Suspect]
     Active Substance: ENCORAFENIB
     Indication: Malignant melanoma
     Dosage: 450 MG/DAY
     Route: 048
     Dates: start: 20250205, end: 20250206
  2. BRAFTOVI [Suspect]
     Active Substance: ENCORAFENIB
     Indication: BRAF V600E mutation positive
  3. MEKTOVI [Suspect]
     Active Substance: BINIMETINIB
     Indication: Malignant melanoma
     Dosage: 90 MG/ DAY
     Route: 048
     Dates: start: 20250205, end: 20250206
  4. MEKTOVI [Suspect]
     Active Substance: BINIMETINIB
     Indication: BRAF V600E mutation positive

REACTIONS (2)
  - Visual impairment [Recovered/Resolved]
  - Detachment of retinal pigment epithelium [Recovered/Resolved]

NARRATIVE: CASE EVENT DATE: 20250206
